FAERS Safety Report 14227877 (Version 1)
Quarter: 2017Q4

REPORT INFORMATION
  Report Type: Spontaneous
  Country: US (occurrence: US)
  Receive Date: 20171127
  Receipt Date: 20171127
  Transmission Date: 20180321
  Serious: Yes (Hospitalization, Other)
  Sender: FDA-Public Use
  Company Number: US-TEVA-2017-US-826713

PATIENT
  Sex: Male

DRUGS (1)
  1. METOCLOPRAMIDE. [Suspect]
     Active Substance: METOCLOPRAMIDE
     Indication: FLATULENCE
     Route: 048
     Dates: start: 2004, end: 2008

REACTIONS (10)
  - Road traffic accident [Unknown]
  - Aggression [Unknown]
  - Seizure [Unknown]
  - Tremor [Unknown]
  - Loss of consciousness [Unknown]
  - Delusion [Unknown]
  - Fall [Unknown]
  - Product use issue [Unknown]
  - Laceration [Unknown]
  - Disorientation [Unknown]
